FAERS Safety Report 14083656 (Version 1)
Quarter: 2017Q4

REPORT INFORMATION
  Report Type: Spontaneous
  Country: RO (occurrence: RO)
  Receive Date: 20171013
  Receipt Date: 20171013
  Transmission Date: 20180321
  Serious: Yes (Hospitalization)
  Sender: FDA-Public Use
  Company Number: RO-ROCHE-2007551

PATIENT
  Sex: Female

DRUGS (3)
  1. MYOCET [Concomitant]
     Active Substance: DOXORUBICIN
     Indication: CHEMOTHERAPY
     Dosage: 4 CYCLES
     Route: 065
     Dates: start: 201505
  2. CAPECITABINE. [Concomitant]
     Active Substance: CAPECITABINE
     Route: 065
     Dates: start: 201606, end: 201611
  3. HERCEPTIN [Suspect]
     Active Substance: TRASTUZUMAB
     Indication: BREAST CANCER METASTATIC
     Route: 058
     Dates: start: 201505, end: 2017

REACTIONS (6)
  - Skin ulcer [Recovered/Resolved]
  - Depression [Unknown]
  - Off label use [Unknown]
  - Intentional product use issue [Unknown]
  - Rash pruritic [Unknown]
  - Malaise [Unknown]

NARRATIVE: CASE EVENT DATE: 2016
